FAERS Safety Report 6866810-6 (Version None)
Quarter: 2010Q2

REPORT INFORMATION
  Report Type: 
  Country: None (occurrence: None)
  Receive Date: 20100607
  Receipt Date: 20080523
  Transmission Date: 20101027
  Serious: No
  Sender: FDA-Public Use
  Company Number: 2008-00088

PATIENT
  Sex: Female
  Weight: 86.1834 kg

DRUGS (2)
  1. ZICAM MULTI-SYMPTOM DAYTIME [Suspect]
     Dosage: TID X 1 DAY
     Dates: start: 20080220, end: 20080220
  2. ZYRTEC [Concomitant]

REACTIONS (2)
  - AGEUSIA [None]
  - ANOSMIA [None]
